FAERS Safety Report 23148403 (Version 1)
Quarter: 2023Q4

REPORT INFORMATION
  Report Type: Spontaneous
  Country: CN (occurrence: CN)
  Receive Date: 20231106
  Receipt Date: 20231106
  Transmission Date: 20240109
  Serious: Yes (Other)
  Sender: FDA-Public Use
  Company Number: CN-ELI_LILLY_AND_COMPANY-CN202310016818

PATIENT
  Age: 50 Year
  Sex: Female
  Weight: 52 kg

DRUGS (3)
  1. RAMUCIRUMAB [Suspect]
     Active Substance: RAMUCIRUMAB
     Indication: Gastric cancer
     Dosage: 400 MG, DAILY
     Route: 041
     Dates: start: 20231017, end: 20231017
  2. PACLITAXEL [Suspect]
     Active Substance: PACLITAXEL
     Indication: Gastric cancer
     Dosage: 200 MG, DAILY
     Route: 041
     Dates: start: 20231019, end: 20231019
  3. PENPULIMAB [Suspect]
     Active Substance: PENPULIMAB
     Indication: Gastric cancer
     Dosage: 200 MG, DAILY
     Route: 041
     Dates: start: 20231018, end: 20231018

REACTIONS (1)
  - Myelosuppression [Unknown]

NARRATIVE: CASE EVENT DATE: 20231024
